FAERS Safety Report 12774312 (Version 2)
Quarter: 2017Q4

REPORT INFORMATION
  Report Type: Spontaneous
  Country: US (occurrence: US)
  Receive Date: 20160923
  Receipt Date: 20171003
  Transmission Date: 20180320
  Serious: No
  Sender: FDA-Public Use
  Company Number: US-PFIZER INC-2016442870

PATIENT
  Age: 55 Year
  Sex: Male
  Weight: 117 kg

DRUGS (1)
  1. VIAGRA [Suspect]
     Active Substance: SILDENAFIL CITRATE
     Indication: SEXUAL DYSFUNCTION
     Dosage: 100 MG, UNK (ONCE OR TWICE A WEEK)
     Route: 048
     Dates: start: 2012

REACTIONS (7)
  - Limb injury [Unknown]
  - Head injury [Unknown]
  - Hypertension [Recovered/Resolved]
  - Overweight [Unknown]
  - Anger [Unknown]
  - Agitation [Unknown]
  - Infection [Unknown]

NARRATIVE: CASE EVENT DATE: 201704
